FAERS Safety Report 19313180 (Version 1)
Quarter: 2021Q2

REPORT INFORMATION
  Report Type: Spontaneous
  Country: US (occurrence: US)
  Receive Date: 20210527
  Receipt Date: 20210527
  Transmission Date: 20210717
  Serious: Yes (Hospitalization, Other)
  Sender: FDA-Public Use
  Company Number: US-SA-2021SA174796

PATIENT
  Sex: Male

DRUGS (1)
  1. DUPIXENT [Suspect]
     Active Substance: DUPILUMAB
     Dosage: UNK
     Route: 058
     Dates: start: 20200904

REACTIONS (5)
  - Brain neoplasm [Unknown]
  - Unresponsive to stimuli [Unknown]
  - Lung cancer metastatic [Unknown]
  - Dyspnoea [Unknown]
  - Pneumonia [Unknown]
